FAERS Safety Report 13977170 (Version 1)
Quarter: 2017Q3

REPORT INFORMATION
  Report Type: Spontaneous
  Country: US (occurrence: US)
  Receive Date: 20170915
  Receipt Date: 20170915
  Transmission Date: 20171128
  Serious: No
  Sender: FDA-Public Use
  Company Number: US-ROCHE-714363

PATIENT

DRUGS (2)
  1. TAXOL [Suspect]
     Active Substance: PACLITAXEL
     Indication: PRODUCT USED FOR UNKNOWN INDICATION
     Route: 065
  2. HERCEPTIN [Suspect]
     Active Substance: TRASTUZUMAB
     Indication: PRODUCT USED FOR UNKNOWN INDICATION
     Route: 065

REACTIONS (12)
  - Somnolence [Unknown]
  - Neuropathy peripheral [Unknown]
  - Viral infection [Unknown]
  - Rhinorrhoea [Unknown]
  - Neuralgia [Unknown]
  - Hot flush [Unknown]
  - Hypoaesthesia [Unknown]
  - Nail disorder [Unknown]
  - Skin fissures [Unknown]
  - Pallor [Unknown]
  - Cough [Unknown]
  - Asthma [Unknown]
